FAERS Safety Report 6684071-8 (Version None)
Quarter: 2010Q2

REPORT INFORMATION
  Report Type: 
  Country: None (occurrence: None)
  Receive Date: 20100416
  Receipt Date: 20100409
  Transmission Date: 20101027
  Serious: Yes (Hospitalization, Disabling)
  Sender: FDA-Public Use
  Company Number: US-B.I. PHARMACEUTICALS,INC./RIDGEFIELD-2010-BP-04177BP

PATIENT
  Sex: Male

DRUGS (7)
  1. SPIRIVA [Suspect]
     Indication: CHRONIC OBSTRUCTIVE PULMONARY DISEASE
     Route: 055
     Dates: start: 20090101, end: 20100301
  2. SPIRIVA [Suspect]
     Dosage: 18 MCG
     Route: 055
     Dates: start: 20100301
  3. PEPCID AC [Concomitant]
     Indication: GASTROOESOPHAGEAL REFLUX DISEASE
     Dosage: 20 MG
     Route: 048
     Dates: start: 20091001
  4. LOPRESSOR [Concomitant]
     Indication: HYPERTENSION
  5. LIPITOR [Concomitant]
     Indication: BLOOD CHOLESTEROL INCREASED
  6. PLAVIX [Concomitant]
     Indication: BLOOD CHOLESTEROL INCREASED
  7. NASONEX [Concomitant]
     Indication: SEASONAL ALLERGY

REACTIONS (8)
  - ABASIA [None]
  - ANEURYSM [None]
  - CEREBROVASCULAR ACCIDENT [None]
  - DYSGRAPHIA [None]
  - MENTAL IMPAIRMENT [None]
  - MONOPLEGIA [None]
  - PARALYSIS [None]
  - SPEECH DISORDER [None]
